FAERS Safety Report 13617539 (Version 7)
Quarter: 2017Q4

REPORT INFORMATION
  Report Type: Spontaneous
  Country: US (occurrence: US)
  Receive Date: 20170606
  Receipt Date: 20171220
  Transmission Date: 20180320
  Serious: Yes (Hospitalization, Other)
  Sender: FDA-Public Use
  Company Number: US-SAOL THERAPEUTICS-2017SAO00972

PATIENT
  Age: 56 Year
  Weight: 105.67 kg

DRUGS (23)
  1. IPRATROPIUM [Concomitant]
     Active Substance: IPRATROPIUM
     Dosage: UNK DOSAGE UNITS, 3X/DAY, AS NEEDED FOR RUNNY NOSE
     Route: 045
  2. MORPHINE [Suspect]
     Active Substance: MORPHINE
     Dosage: 0.8 MG, \DAY
     Route: 037
  3. AUBAGIO [Concomitant]
     Active Substance: TERIFLUNOMIDE
     Dosage: 7 MG, 1X/DAY
  4. COMPOUNDED MORPHINE [Suspect]
     Active Substance: MORPHINE
     Dosage: 0.8192 MG, \DAY
  5. HYDROCORTISONE. [Concomitant]
     Active Substance: HYDROCORTISONE
     Dosage: 5 MG, 1X/DAY AT 9 PM
  6. BACLOFEN. [Suspect]
     Active Substance: BACLOFEN
     Indication: MULTIPLE SCLEROSIS
     Dosage: 410 UNK, \DAY
     Route: 037
  7. BACLOFEN. [Suspect]
     Active Substance: BACLOFEN
     Dosage: 409 ?G, \DAY
     Route: 037
  8. COMPOUNDED BACLOFEN [Suspect]
     Active Substance: BACLOFEN
     Indication: MULTIPLE SCLEROSIS
     Dosage: 409 ?G, \DAY
     Route: 037
  9. LIPITOR [Concomitant]
     Active Substance: ATORVASTATIN CALCIUM
     Dosage: 10 MG, UNK
  10. OXYCODONE [Concomitant]
     Active Substance: OXYCODONE
     Dosage: 5 MG, 4X/DAY, AS NEEDED FOR SEVERE PAIN
  11. MORPHINE [Suspect]
     Active Substance: MORPHINE
     Dosage: 0.85 MG, \DAY
     Route: 037
  12. FLEXERIL [Concomitant]
     Active Substance: CYCLOBENZAPRINE HYDROCHLORIDE
     Dosage: 5 MG, 3X/DAY
  13. COMPOUNDED BACLOFEN [Suspect]
     Active Substance: BACLOFEN
     Indication: MUSCLE SPASTICITY
     Dosage: UNK
     Dates: start: 20110121
  14. HYDROCORTISONE. [Concomitant]
     Active Substance: HYDROCORTISONE
     Dosage: 10 MG, 1X/DAY AT 9 AM
  15. KLONOPIN [Concomitant]
     Active Substance: CLONAZEPAM
     Dosage: 0.5 MG, UNK
  16. BACLOFEN. [Suspect]
     Active Substance: BACLOFEN
     Indication: MUSCLE SPASTICITY
     Dosage: 425 ?G, \DAY
     Route: 037
  17. MORPHINE [Suspect]
     Active Substance: MORPHINE
     Dosage: 0.82 MG, \DAY
     Route: 037
  18. DIOVAN HCT [Concomitant]
     Active Substance: HYDROCHLOROTHIAZIDE\VALSARTAN
     Dosage: UNK MG, UNK
  19. LAMOTRIGINE. [Concomitant]
     Active Substance: LAMOTRIGINE
     Dosage: 100 MG, 1X/DAY
  20. COMPOUNDED BACLOFEN [Suspect]
     Active Substance: BACLOFEN
     Dosage: 409.6 ?G, UNK
  21. COMPOUNDED MORPHINE [Suspect]
     Active Substance: MORPHINE
     Dosage: 0.8 MG, \DAY
     Route: 037
  22. NEURONTIN [Concomitant]
     Active Substance: GABAPENTIN
     Dosage: 600 MG, 4X/DAY
  23. TRAMADOL. [Concomitant]
     Active Substance: TRAMADOL
     Dosage: 50 MG, 3X/DAY

REACTIONS (11)
  - Muscle spasms [Unknown]
  - Pain [Unknown]
  - Oxygen saturation decreased [Recovered/Resolved]
  - Drug withdrawal syndrome [Recovered/Resolved]
  - Dyspnoea [Recovered/Resolved]
  - Wrong technique in product usage process [Recovered/Resolved]
  - Implant site hypoaesthesia [Recovering/Resolving]
  - Chest discomfort [Recovered/Resolved]
  - Musculoskeletal stiffness [Unknown]
  - Implant site pruritus [Recovering/Resolving]
  - Implant site pain [Recovering/Resolving]

NARRATIVE: CASE EVENT DATE: 201705
